FAERS Safety Report 5195628-8 (Version None)
Quarter: 2006Q4

REPORT INFORMATION
  Report Type: 
  Country: None (occurrence: None)
  Receive Date: 20061226
  Receipt Date: 20061226
  Transmission Date: 20070319
  Serious: Yes (Other)
  Sender: FDA-Public Use
  Company Number: None

PATIENT
  Age: 47 Year
  Sex: Male
  Weight: 90.7194 kg

DRUGS (2)
  1. IBUPROFEN [Suspect]
  2. ZIAC [Suspect]

REACTIONS (5)
  - BLOOD POTASSIUM DECREASED [None]
  - DRUG INTERACTION [None]
  - FATIGUE [None]
  - MYALGIA [None]
  - SLEEP DISORDER [None]
